FAERS Safety Report 6924647-3 (Version None)
Quarter: 2010Q3

REPORT INFORMATION
  Report Type: 
  Country: None (occurrence: None)
  Receive Date: 20100816
  Receipt Date: 20100811
  Transmission Date: 20110219
  Serious: Yes (Other)
  Sender: FDA-Public Use
  Company Number: US-ASTRAZENECA-2007UW25161

PATIENT
  Age: 543 Month
  Sex: Male
  Weight: 117.9 kg

DRUGS (8)
  1. SEROQUEL [Suspect]
     Indication: NIGHTMARE
     Dosage: 150-300 MG
     Route: 048
     Dates: start: 19970601, end: 20071201
  2. SEROQUEL [Suspect]
     Indication: FLASHBACK
     Dosage: 150-300 MG
     Route: 048
     Dates: start: 19970601, end: 20071201
  3. SEROQUEL [Suspect]
     Route: 048
     Dates: start: 20071009
  4. SEROQUEL [Suspect]
     Route: 048
     Dates: start: 20071009
  5. ZYPREXA [Concomitant]
     Indication: NIGHTMARE
     Dates: start: 19971101
  6. ZYPREXA [Concomitant]
     Indication: FLASHBACK
     Dates: start: 19971101
  7. LIPITOR [Concomitant]
     Dosage: 20 MG TO 80 MG DAILY
     Route: 048
     Dates: start: 20020404
  8. WELLBUTRIN [Concomitant]
     Dates: start: 20080331

REACTIONS (11)
  - ADVERSE DRUG REACTION [None]
  - BLOOD CHOLESTEROL INCREASED [None]
  - BLOOD TRIGLYCERIDES INCREASED [None]
  - BRAIN NEOPLASM [None]
  - DIABETES MELLITUS [None]
  - DIABETIC COMPLICATION [None]
  - ELECTROCUTION [None]
  - HYPERLIPIDAEMIA [None]
  - NECROTISING FASCIITIS [None]
  - TYPE 2 DIABETES MELLITUS [None]
  - VIITH NERVE PARALYSIS [None]
